FAERS Safety Report 23028020 (Version 2)
Quarter: 2023Q4

REPORT INFORMATION
  Report Type: Spontaneous
  Country: CA (occurrence: CA)
  Receive Date: 20231004
  Receipt Date: 20231019
  Transmission Date: 20240110
  Serious: Yes (Disabling)
  Sender: FDA-Public Use
  Company Number: CA-PFIZER INC-202300309629

PATIENT
  Age: 60 Year
  Sex: Female

DRUGS (2)
  1. PAXLOVID [Suspect]
     Active Substance: NIRMATRELVIR\RITONAVIR
     Indication: COVID-19 treatment
     Dosage: UNK
     Dates: start: 20230821, end: 20230826
  2. SYNTHROID [Concomitant]
     Active Substance: LEVOTHYROXINE SODIUM
     Dosage: UNK
     Dates: start: 19840612

REACTIONS (6)
  - Fatigue [Unknown]
  - Cough [Unknown]
  - Malnutrition [Unknown]
  - Palpitations [Unknown]
  - Chest discomfort [Unknown]
  - Decreased activity [Unknown]

NARRATIVE: CASE EVENT DATE: 20230831
